FAERS Safety Report 11623285 (Version 1)
Quarter: 2015Q4

REPORT INFORMATION
  Report Type: Spontaneous
  Country: US (occurrence: US)
  Receive Date: 20151013
  Receipt Date: 20151013
  Transmission Date: 20160304
  Serious: No
  Sender: FDA-Public Use
  Company Number: US-JNJFOC-20150212208

PATIENT
  Age: 79 Year
  Sex: Female
  Weight: 45.36 kg

DRUGS (2)
  1. CHILDRENS TYLENOL [Suspect]
     Active Substance: ACETAMINOPHEN
     Route: 048
  2. CHILDRENS TYLENOL [Suspect]
     Active Substance: ACETAMINOPHEN
     Indication: BACK PAIN
     Dosage: 2 TEASPOONS EVERY 4 HOURS
     Route: 048
     Dates: start: 20150212

REACTIONS (2)
  - Drug administered to patient of inappropriate age [Unknown]
  - Product lot number issue [Unknown]
